FAERS Safety Report 13667358 (Version 1)
Quarter: 2017Q2

REPORT INFORMATION
  Report Type: Spontaneous
  Country: GB (occurrence: GB)
  Receive Date: 20170620
  Receipt Date: 20170620
  Transmission Date: 20170830
  Serious: Yes (Disabling)
  Sender: FDA-Public Use
  Company Number: GB-TORRENT-00015336

PATIENT
  Age: 38 Year
  Sex: Female
  Weight: 113 kg

DRUGS (16)
  1. ORLISTAT [Concomitant]
     Active Substance: ORLISTAT
  2. CYCLIZINE [Concomitant]
     Active Substance: CYCLIZINE
  3. FLUCLOXACILLIN [Concomitant]
     Active Substance: FLUCLOXACILLIN
  4. FUSIDIC ACID [Concomitant]
     Active Substance: FUSIDIC ACID
  5. DULOXETINE. [Suspect]
     Active Substance: DULOXETINE
  6. HYDROXOCOBALAMIN [Concomitant]
     Active Substance: HYDROXOCOBALAMIN
  7. LYRICA [Concomitant]
     Active Substance: PREGABALIN
  8. NAPROXEN. [Concomitant]
     Active Substance: NAPROXEN
  9. OMEPRAZOLE. [Concomitant]
     Active Substance: OMEPRAZOLE
  10. PREGABALIN. [Concomitant]
     Active Substance: PREGABALIN
  11. BACLOFEN. [Concomitant]
     Active Substance: BACLOFEN
  12. FOLIC ACID. [Concomitant]
     Active Substance: FOLIC ACID
  13. LONGTEC [Concomitant]
     Active Substance: OXYCODONE HYDROCHLORIDE
  14. FUROSEMIDE. [Concomitant]
     Active Substance: FUROSEMIDE
  15. BISACODYL. [Concomitant]
     Active Substance: BISACODYL
  16. VITAMIN D3 [Concomitant]
     Active Substance: CHOLECALCIFEROL

REACTIONS (3)
  - Conversion disorder [Recovering/Resolving]
  - Sensory disturbance [Unknown]
  - Paraesthesia [Unknown]

NARRATIVE: CASE EVENT DATE: 20170412
